FAERS Safety Report 4795708-2 (Version None)
Quarter: 2005Q3

REPORT INFORMATION
  Report Type: 
  Country: None (occurrence: None)
  Receive Date: 20050916
  Receipt Date: 20050606
  Transmission Date: 20060218
  Serious: Yes (Hospitalization)
  Sender: FDA-Public Use
  Company Number: US-JNJFOC-20050601970

PATIENT
  Age: 19 Year
  Sex: Female
  Weight: 136.9863 kg

DRUGS (7)
  1. TOPAMAX [Suspect]
     Indication: MIGRAINE
     Dosage: 75 MG, 2 IN 1 DAY
  2. HYDROCODONE (HYDROCODONE) [Concomitant]
  3. SINGULAR (MONTELUKAST SODIUM) [Concomitant]
  4. ZYRTEC D (CETIRIZINE HYDROCHLORIDE) [Concomitant]
  5. ADVAIR DISKUS 100/50 [Concomitant]
  6. IMITREX [Concomitant]
  7. ALBUTEROL [Concomitant]

REACTIONS (2)
  - DEHYDRATION [None]
  - MIGRAINE [None]
